FAERS Safety Report 6420221-6 (Version None)
Quarter: 2009Q4

REPORT INFORMATION
  Report Type: 
  Country: None (occurrence: None)
  Receive Date: 20091029
  Receipt Date: 20091016
  Transmission Date: 20100525
  Serious: Yes (Other)
  Sender: FDA-Public Use
  Company Number: PHHY2009CA44825

PATIENT
  Age: 74 Year
  Sex: Female

DRUGS (8)
  1. DIOVAN [Suspect]
     Indication: HYPERTENSION
     Dosage: 160 MG, QD
  2. DIOVAN [Suspect]
     Dosage: 320 MG, QD
  3. CARDIZEM [Concomitant]
  4. APO-VERAP [Concomitant]
  5. ATENOLOL [Concomitant]
     Dosage: 50 MG, UNK
  6. LANOXIN [Concomitant]
  7. COUMADIN [Concomitant]
  8. FUROSEMIDE [Concomitant]

REACTIONS (6)
  - ARRHYTHMIA [None]
  - BLOOD PRESSURE INADEQUATELY CONTROLLED [None]
  - DIARRHOEA [None]
  - DIZZINESS [None]
  - MUSCULOSKELETAL PAIN [None]
  - OEDEMA PERIPHERAL [None]
